FAERS Safety Report 25833221 (Version 1)
Quarter: 2025Q3

REPORT INFORMATION
  Report Type: Spontaneous
  Country: US (occurrence: None)
  Receive Date: 20250922
  Receipt Date: 20250922
  Transmission Date: 20251021
  Serious: No
  Sender: FDA-CTU
  Company Number: None

PATIENT
  Age: 61 Year
  Sex: Female
  Weight: 69.8 kg

DRUGS (1)
  1. XEMBIFY [Suspect]
     Active Substance: HUMAN IMMUNOGLOBULIN G
     Dosage: OTHER FREQUENCY : ONCE A WEEK;?
     Route: 058

REACTIONS (6)
  - Fatigue [None]
  - Asthenia [None]
  - Tremor [None]
  - Headache [None]
  - Brain fog [None]
  - Infusion related reaction [None]

NARRATIVE: CASE EVENT DATE: 20250912
